FAERS Safety Report 25531688 (Version 1)
Quarter: 2025Q3

REPORT INFORMATION
  Report Type: Spontaneous
  Country: US (occurrence: US)
  Receive Date: 20250709
  Receipt Date: 20250709
  Transmission Date: 20251020
  Serious: No
  Sender: NOVARTIS
  Company Number: US-002147023-NVSC2025US104787

PATIENT
  Sex: Female

DRUGS (1)
  1. COSENTYX [Suspect]
     Active Substance: SECUKINUMAB
     Indication: Product used for unknown indication
     Dosage: UNK, QMO (300 MG/2 ML)
     Route: 065

REACTIONS (6)
  - Device issue [Unknown]
  - Device difficult to use [Unknown]
  - Drug dose omission by device [Unknown]
  - Injection site erythema [Unknown]
  - Device leakage [Unknown]
  - Injection site pain [Unknown]
